FAERS Safety Report 6045624-3 (Version None)
Quarter: 2009Q1

REPORT INFORMATION
  Report Type: 
  Country: None (occurrence: None)
  Receive Date: 20090121
  Receipt Date: 20090113
  Transmission Date: 20090719
  Serious: Yes (Death)
  Sender: FDA-Public Use
  Company Number: JP-MERCK-0901USA02127

PATIENT
  Age: 73 Year
  Sex: Female

DRUGS (2)
  1. FOSAMAX [Suspect]
     Route: 048
     Dates: start: 20050401, end: 20050801
  2. [THERAPY UNSPECIFIED] [Suspect]
     Route: 065

REACTIONS (4)
  - GASTROINTESTINAL HAEMORRHAGE [None]
  - INTERSTITIAL LUNG DISEASE [None]
  - PANCYTOPENIA [None]
  - PNEUMOCYSTIS JIROVECI PNEUMONIA [None]
